FAERS Safety Report 15154477 (Version 1)
Quarter: 2018Q3

REPORT INFORMATION
  Report Type: Spontaneous
  Country: US (occurrence: US)
  Receive Date: 20180717
  Receipt Date: 20180717
  Transmission Date: 20181010
  Serious: No
  Sender: FDA-Public Use
  Company Number: US-PFIZER INC-2018281712

PATIENT
  Age: 45 Year
  Sex: Female
  Weight: 88.45 kg

DRUGS (1)
  1. LYRICA [Suspect]
     Active Substance: PREGABALIN
     Indication: FIBROMYALGIA
     Dosage: 225 MG, 2X/DAY
     Route: 048
     Dates: start: 2017

REACTIONS (4)
  - Nasopharyngitis [Unknown]
  - Circumstance or information capable of leading to medication error [Unknown]
  - Cough [Unknown]
  - Throat clearing [Unknown]

NARRATIVE: CASE EVENT DATE: 2018
